FAERS Safety Report 5574302-X (Version None)
Quarter: 2007Q4

REPORT INFORMATION
  Report Type: 
  Country: None (occurrence: None)
  Receive Date: 20071227
  Receipt Date: 20071214
  Transmission Date: 20080405
  Serious: Yes (Hospitalization, Other)
  Sender: FDA-Public Use
  Company Number: US-BAYER-US-2007-036612

PATIENT
  Age: 40 Year
  Sex: Female
  Weight: 68 kg

DRUGS (1)
  1. YAZ [Suspect]
     Route: 048
     Dates: start: 20060801, end: 20070416

REACTIONS (1)
  - CEREBRAL THROMBOSIS [None]
